FAERS Safety Report 9441815 (Version 1)
Quarter: 2013Q3

REPORT INFORMATION
  Report Type: Spontaneous
  Country: US (occurrence: US)
  Receive Date: 20130806
  Receipt Date: 20130806
  Transmission Date: 20140515
  Serious: No
  Sender: FDA-Public Use
  Company Number: US-PFIZER INC-2013228118

PATIENT
  Age: 65 Year
  Sex: Female
  Weight: 68.03 kg

DRUGS (5)
  1. GABAPENTIN [Suspect]
     Indication: NERVE INJURY
     Dosage: 300 MG, DAILY
     Dates: start: 2012
  2. GABAPENTIN [Suspect]
     Indication: NERVE COMPRESSION
  3. HYDROCHLOROTHIAZIDE/LOSARTAN [Concomitant]
     Indication: HYPERTENSION
     Dosage: LOSARTAN 100MG /HYDROCHLOROTHIAZIDE 25MG, DAILY
  4. PRAVASTATIN [Concomitant]
     Indication: BLOOD CHOLESTEROL ABNORMAL
     Dosage: 40 MG, DAILY
  5. CARTIA XT [Concomitant]
     Indication: CARDIAC DISORDER
     Dosage: 120 MG, DAILY

REACTIONS (2)
  - Off label use [Not Recovered/Not Resolved]
  - Drug ineffective for unapproved indication [Unknown]
